FAERS Safety Report 5634210-2 (Version None)
Quarter: 2008Q1

REPORT INFORMATION
  Report Type: 
  Country: None (occurrence: None)
  Receive Date: 20080219
  Receipt Date: 20080211
  Transmission Date: 20080703
  Serious: Yes (Life-Threatening, Hospitalization)
  Sender: FDA-Public Use
  Company Number: 18358

PATIENT
  Age: 22 Year
  Sex: Male

DRUGS (8)
  1. ETOPOSIDE [Suspect]
     Indication: HODGKIN'S DISEASE
     Dosage: 200 MG/M2 FREQ
     Dates: start: 20071205, end: 20071207
  2. VINCRISTINE [Suspect]
     Indication: HODGKIN'S DISEASE
     Dosage: 2 MG ONCE
     Dates: start: 20071212, end: 20071212
  3. BLEOMYCIN [Suspect]
     Indication: HODGKIN'S DISEASE
     Dosage: 10 MG/M2 ONCE
     Dates: start: 20071212, end: 20071212
  4. DOXORUBICIN HCL [Suspect]
     Indication: HODGKIN'S DISEASE
     Dosage: 35 MG/M2 ONCE
     Dates: start: 20071205, end: 20071205
  5. CYCLOPHOSPHAMIDE [Suspect]
     Indication: HODGKIN'S DISEASE
     Dosage: 1250 MG/M2 ONCE
     Dates: start: 20071205, end: 20071205
  6. PROCARBAZINE [Suspect]
     Indication: HODGKIN'S DISEASE
     Dosage: 100 MG/M2 FREQ
     Dates: start: 20071205, end: 20071211
  7. NEUPOGEN [Concomitant]
  8. PREDNISONE TAB [Concomitant]

REACTIONS (12)
  - BACTERIAL SEPSIS [None]
  - CHILLS [None]
  - DIARRHOEA [None]
  - ESCHERICHIA INFECTION [None]
  - FALL [None]
  - KLEBSIELLA INFECTION [None]
  - MYOCLONIC EPILEPSY [None]
  - PANCYTOPENIA [None]
  - PYREXIA [None]
  - RENAL FAILURE ACUTE [None]
  - SUBARACHNOID HAEMORRHAGE [None]
  - VOMITING [None]
